FAERS Safety Report 17248330 (Version 2)
Quarter: 2020Q2

REPORT INFORMATION
  Report Type: Spontaneous
  Country: US (occurrence: US)
  Receive Date: 20200108
  Receipt Date: 20200429
  Transmission Date: 20200713
  Serious: No
  Sender: FDA-Public Use
  Company Number: NVSC2020US002011

PATIENT
  Sex: Female

DRUGS (4)
  1. FAMPRIDINE [Suspect]
     Active Substance: DALFAMPRIDINE
     Indication: MULTIPLE SCLEROSIS
     Dosage: 10 MG, BID
     Route: 065
     Dates: start: 20190126
  2. FAMPRIDINE [Suspect]
     Active Substance: DALFAMPRIDINE
     Dosage: 10 MG, Q12H
     Route: 065
  3. GILENYA [Suspect]
     Active Substance: FINGOLIMOD HYDROCHLORIDE
     Indication: PRODUCT USED FOR UNKNOWN INDICATION
     Dosage: UNK
     Route: 065
  4. FAMPRIDINE [Suspect]
     Active Substance: DALFAMPRIDINE
     Dosage: 10 MG, BID
     Route: 065

REACTIONS (3)
  - Mobility decreased [Unknown]
  - Headache [Unknown]
  - Nausea [Not Recovered/Not Resolved]
